FAERS Safety Report 23905732 (Version 2)
Quarter: 2024Q2

REPORT INFORMATION
  Report Type: Spontaneous
  Country: JP (occurrence: JP)
  Receive Date: 20240527
  Receipt Date: 20240603
  Transmission Date: 20240716
  Serious: Yes (Life-Threatening, Hospitalization, Other)
  Sender: FDA-Public Use
  Company Number: JP-NEUROCRINE BIOSCIENCES INC.-2024NBI05128

PATIENT
  Age: 58 Year
  Sex: Female

DRUGS (12)
  1. VALBENAZINE [Suspect]
     Active Substance: VALBENAZINE
     Indication: Tardive dyskinesia
     Dosage: 40 MILLIGRAM, QD
     Route: 048
     Dates: start: 20230606
  2. BIPERIDEN HYDROCHLORIDE [Suspect]
     Active Substance: BIPERIDEN HYDROCHLORIDE
     Indication: Parkinsonism
     Dosage: 4 MILLIGRAM, QD
     Route: 048
     Dates: end: 20230925
  3. PALIPERIDONE PALMITATE [Suspect]
     Active Substance: PALIPERIDONE PALMITATE
     Indication: Schizophrenia
     Dosage: 75 MILLIGRAM
     Route: 030
     Dates: start: 20220705
  4. PALIPERIDONE PALMITATE [Suspect]
     Active Substance: PALIPERIDONE PALMITATE
     Dosage: 75 MILLIGRAM
     Route: 030
     Dates: start: 20220802
  5. PALIPERIDONE PALMITATE [Suspect]
     Active Substance: PALIPERIDONE PALMITATE
     Dosage: 75 MILLIGRAM
     Route: 030
     Dates: start: 20220830
  6. PALIPERIDONE PALMITATE [Suspect]
     Active Substance: PALIPERIDONE PALMITATE
     Dosage: 75 MILLIGRAM
     Route: 030
     Dates: start: 20220927
  7. PALIPERIDONE PALMITATE [Suspect]
     Active Substance: PALIPERIDONE PALMITATE
     Dosage: 263 MILLIGRAM
     Route: 030
     Dates: start: 20221025
  8. PALIPERIDONE PALMITATE [Suspect]
     Active Substance: PALIPERIDONE PALMITATE
     Dosage: 263 MILLIGRAM
     Route: 030
     Dates: start: 20230119
  9. PALIPERIDONE PALMITATE [Suspect]
     Active Substance: PALIPERIDONE PALMITATE
     Dosage: 263 MILLIGRAM
     Route: 030
     Dates: start: 20230411
  10. PALIPERIDONE PALMITATE [Suspect]
     Active Substance: PALIPERIDONE PALMITATE
     Dosage: 263 MILLIGRAM
     Route: 030
     Dates: start: 20230704
  11. DIAZEPAM [Concomitant]
     Active Substance: DIAZEPAM
     Indication: Parkinsonism
     Dosage: UNK
     Dates: start: 20221122, end: 20230925
  12. FLUNITRAZEPAM [Concomitant]
     Active Substance: FLUNITRAZEPAM
     Indication: Insomnia
     Dosage: UNK
     Dates: end: 20230925

REACTIONS (2)
  - Rhabdomyolysis [Recovering/Resolving]
  - Pneumonia [Recovering/Resolving]

NARRATIVE: CASE EVENT DATE: 20230926
